FAERS Safety Report 4975879-5 (Version None)
Quarter: 2006Q2

REPORT INFORMATION
  Report Type: 
  Country: None (occurrence: None)
  Receive Date: 20060411
  Receipt Date: 20060328
  Transmission Date: 20061013
  Serious: Yes (Death)
  Sender: FDA-Public Use
  Company Number: HECT-10197

PATIENT
  Age: 54 Year
  Sex: Female

DRUGS (6)
  1. HECTOROL [Suspect]
     Indication: HYPERPARATHYROIDISM SECONDARY
  2. FOLIC ACID [Concomitant]
  3. COLCHICINE [Concomitant]
  4. PHOSLO [Concomitant]
  5. METRONIDAZOLE [Concomitant]
  6. TRAMADOL HCL [Concomitant]

REACTIONS (3)
  - HYPERCALCAEMIA [None]
  - METASTATIC NEOPLASM [None]
  - SERUM FERRITIN INCREASED [None]
